FAERS Safety Report 24161436 (Version 1)
Quarter: 2024Q3

REPORT INFORMATION
  Report Type: Spontaneous
  Country: HR (occurrence: HR)
  Receive Date: 20240801
  Receipt Date: 20240801
  Transmission Date: 20241016
  Serious: Yes (Other)
  Sender: CHEPLAPHARM
  Company Number: None

PATIENT
  Age: 24 Year
  Sex: Male

DRUGS (3)
  1. CLONAZEPAM [Suspect]
     Active Substance: CLONAZEPAM
     Dosage: BOCICU (50 TBL) 0.5 MG RIVOTRILA?DAILY DOSE: 25 MILLIGRAM
     Route: 048
     Dates: start: 20240610, end: 20240610
  2. HALOPERIDOL [Suspect]
     Active Substance: HALOPERIDOL
     Dosage: 25 TBL HALDOLA OD 2 MG?DAILY DOSE: 50 MILLIGRAM
     Route: 048
     Dates: start: 20240610, end: 20240610
  3. VOLTAREN [Suspect]
     Active Substance: DICLOFENAC SODIUM
     Dosage: 2 VOLTAREN 75 MG CARDS
     Route: 048
     Dates: start: 20240610, end: 20240610

REACTIONS (3)
  - Intentional overdose [Unknown]
  - Suicide attempt [Unknown]
  - Vomiting [Unknown]

NARRATIVE: CASE EVENT DATE: 20240610
